FAERS Safety Report 4844543-5 (Version None)
Quarter: 2005Q4

REPORT INFORMATION
  Report Type: 
  Country: None (occurrence: None)
  Receive Date: 20051130
  Receipt Date: 20051130
  Transmission Date: 20060501
  Serious: No
  Sender: FDA-Public Use
  Company Number: None

PATIENT
  Age: 16 Year
  Sex: Female
  Weight: 58.0604 kg

DRUGS (1)
  1. QUETIAPINE [Suspect]
     Indication: PSYCHOTIC DISORDER
     Dosage: ADMITTED ON 150MG PER DAY ON 07/06/05-TAPERED UP

REACTIONS (2)
  - HYPERTENSION [None]
  - TACHYCARDIA [None]
